FAERS Safety Report 12478656 (Version 1)
Quarter: 2016Q2

REPORT INFORMATION
  Report Type: Spontaneous
  Country: US (occurrence: US)
  Receive Date: 20160619
  Receipt Date: 20160619
  Transmission Date: 20160815
  Serious: Yes (Hospitalization)
  Sender: FDA-Public Use
  Company Number: US-BEH-2016070239

PATIENT
  Sex: Male
  Weight: 85.26 kg

DRUGS (17)
  1. OXYGEN. [Concomitant]
     Active Substance: OXYGEN
  2. HEPARIN [Concomitant]
     Active Substance: HEPARIN SODIUM
  3. CENTRUM SILVER                     /02363801/ [Concomitant]
     Active Substance: MINERALS\VITAMINS
  4. TYLENOL EXTRA STRENGTH [Concomitant]
     Active Substance: ACETAMINOPHEN
  5. LMX                                /00033401/ [Concomitant]
  6. SODIUM CHLORIDE + DEXTROSE [Concomitant]
  7. PREVACID [Concomitant]
     Active Substance: LANSOPRAZOLE
  8. DABRAFENIB [Concomitant]
     Active Substance: DABRAFENIB
  9. VITAMIN D                          /00107901/ [Concomitant]
     Active Substance: ERGOCALCIFEROL
  10. EPIPEN [Concomitant]
     Active Substance: EPINEPHRINE
  11. PHENYTOIN. [Concomitant]
     Active Substance: PHENYTOIN
  12. DEXAMETHASONE. [Concomitant]
     Active Substance: DEXAMETHASONE
  13. ZEMAIRA [Suspect]
     Active Substance: .ALPHA.1-PROTEINASE INHIBITOR HUMAN
     Indication: ALPHA-1 ANTI-TRYPSIN DEFICIENCY
     Dosage: 60 MG/KG, QW
     Route: 065
     Dates: start: 20120727
  14. KEPPRA [Concomitant]
     Active Substance: LEVETIRACETAM
  15. TRAMETINIB [Concomitant]
     Active Substance: TRAMETINIB
  16. LIDOCAINE/PRILOCAINE [Concomitant]
     Active Substance: LIDOCAINE\PRILOCAINE
  17. DIPHENHYDRAMINE                    /00000402/ [Concomitant]
     Active Substance: DIPHENHYDRAMINE

REACTIONS (1)
  - Seizure [Unknown]
